FAERS Safety Report 7705568-5 (Version None)
Quarter: 2011Q3

REPORT INFORMATION
  Report Type: 
  Country: None (occurrence: None)
  Receive Date: 20110823
  Receipt Date: 20110823
  Transmission Date: 20111222
  Serious: Yes (Life-Threatening, Hospitalization)
  Sender: FDA-Public Use
  Company Number: None

PATIENT
  Age: 56 Year
  Sex: Male
  Weight: 75.5 kg

DRUGS (4)
  1. DABIGATRAN [Suspect]
     Indication: ATRIAL FIBRILLATION
     Dosage: 150 MG BID PO ; MG PO
     Route: 048
     Dates: start: 20101123
  2. DABIGATRAN [Suspect]
     Indication: CEREBROVASCULAR ACCIDENT PROPHYLAXIS
     Dosage: 150 MG BID PO ; MG PO
     Route: 048
     Dates: start: 20101123
  3. DABIGATRAN [Suspect]
     Indication: ATRIAL FIBRILLATION
     Dosage: 150 MG BID PO ; MG PO
     Route: 048
     Dates: start: 20110427, end: 20110801
  4. DABIGATRAN [Suspect]
     Indication: CEREBROVASCULAR ACCIDENT PROPHYLAXIS
     Dosage: 150 MG BID PO ; MG PO
     Route: 048
     Dates: start: 20110427, end: 20110801

REACTIONS (4)
  - GASTRIC HAEMORRHAGE [None]
  - RECTAL HAEMORRHAGE [None]
  - HAEMORRHOIDS [None]
  - ANAEMIA [None]
